FAERS Safety Report 8621580-6 (Version None)
Quarter: 2012Q3

REPORT INFORMATION
  Report Type: 
  Country: None (occurrence: None)
  Receive Date: 20120820
  Receipt Date: 20120820
  Transmission Date: 20120928
  Serious: Yes (Other)
  Sender: FDA-Public Use
  Company Number: None

PATIENT
  Age: 57 Year
  Sex: Female
  Weight: 64.4108 kg

DRUGS (2)
  1. AMOXICILLIN AND CLAVULANATE POTASSIUM [Suspect]
     Indication: ERYTHEMA
     Dosage: 1 TABLET BY MOUTH TWICE PER DAY PO
     Route: 048
     Dates: start: 20120815, end: 20120815
  2. AMOXICILLIN AND CLAVULANATE POTASSIUM [Suspect]
     Indication: OEDEMA PERIPHERAL
     Dosage: 1 TABLET BY MOUTH TWICE PER DAY PO
     Route: 048
     Dates: start: 20120815, end: 20120815

REACTIONS (7)
  - NAUSEA [None]
  - VOMITING [None]
  - ABDOMINAL DISCOMFORT [None]
  - ABDOMINAL PAIN UPPER [None]
  - CHILLS [None]
  - MALAISE [None]
  - HYPERHIDROSIS [None]
